FAERS Safety Report 14855078 (Version 1)
Quarter: 2018Q2

REPORT INFORMATION
  Report Type: Spontaneous
  Country: US (occurrence: US)
  Receive Date: 20180507
  Receipt Date: 20180507
  Transmission Date: 20180711
  Serious: No
  Sender: FDA-Public Use
  Company Number: US-ROCHE-1936716

PATIENT
  Age: 63 Year
  Sex: Female

DRUGS (1)
  1. ESBRIET [Suspect]
     Active Substance: PIRFENIDONE
     Indication: PRODUCT USED FOR UNKNOWN INDICATION
     Dosage: TAKE 3 CAPSULES BY MOUTH THRICE A DAY
     Route: 048
     Dates: start: 20170129

REACTIONS (2)
  - Sunburn [Unknown]
  - Erythema [Unknown]

NARRATIVE: CASE EVENT DATE: 20170423
